FAERS Safety Report 8463928 (Version 2)
Quarter: 2014Q1

REPORT INFORMATION
  Report Type: Spontaneous
  Country: US (occurrence: US)
  Receive Date: 20120316
  Receipt Date: 20140228
  Transmission Date: 20141002
  Serious: Yes (Other)
  Sender: FDA-Public Use
  Company Number: US-US-EMD SERONO, INC.-7118849

PATIENT
  Sex: Male
  Weight: 19 kg

DRUGS (6)
  1. SAIZEN [(SOMATROPIN (RDNA ORIGIN) FOR INJECTION)] [Suspect]
     Indication: PRADER-WILLI SYNDROME
     Route: 058
     Dates: start: 20100719
  2. SAIZEN [(SOMATROPIN (RDNA ORIGIN) FOR INJECTION)] [Suspect]
     Route: 058
  3. SOLU-CORTEF [Concomitant]
     Indication: DEVELOPMENTAL DELAY
     Dates: start: 20121213
  4. SOLU-CORTEF [Concomitant]
     Indication: ADRENAL INSUFFICIENCY
  5. HYDROCORTISONE [Concomitant]
     Indication: DEVELOPMENTAL DELAY
     Dates: start: 20131115
  6. HYDROCORTISONE [Concomitant]
     Indication: ADRENAL INSUFFICIENCY

REACTIONS (3)
  - Impaired healing [Not Recovered/Not Resolved]
  - Wound secretion [Not Recovered/Not Resolved]
  - Scab [Not Recovered/Not Resolved]
